FAERS Safety Report 13649087 (Version 1)
Quarter: 2017Q2

REPORT INFORMATION
  Report Type: Report from Study
  Country: JP (occurrence: JP)
  Receive Date: 20170613
  Receipt Date: 20170613
  Transmission Date: 20170830
  Serious: Yes (Death)
  Sender: FDA-Public Use
  Company Number: JP-ELI_LILLY_AND_COMPANY-JP201706004074

PATIENT

DRUGS (4)
  1. CETUXIMAB. [Suspect]
     Active Substance: CETUXIMAB
     Indication: HEAD AND NECK CANCER
     Dosage: 400 MG/M2, UNKNOWN
     Route: 042
  2. DOCETAXEL. [Concomitant]
     Active Substance: DOCETAXEL
     Indication: HEAD AND NECK CANCER
     Dosage: 75 MG/M2, UNKNOWN
     Route: 041
  3. CDDP [Concomitant]
     Active Substance: CISPLATIN
     Indication: HEAD AND NECK CANCER
     Dosage: 75 MG/M2, UNKNOWN
     Route: 041
  4. CETUXIMAB. [Suspect]
     Active Substance: CETUXIMAB
     Dosage: 250 MG/M2, WEEKLY (1/W)
     Route: 041

REACTIONS (2)
  - Death [Fatal]
  - Off label use [Unknown]
